FAERS Safety Report 4932822-2 (Version None)
Quarter: 2006Q1

REPORT INFORMATION
  Report Type: 
  Country: None (occurrence: None)
  Receive Date: 20060306
  Receipt Date: 20060301
  Transmission Date: 20060701
  Serious: Yes (Hospitalization)
  Sender: FDA-Public Use
  Company Number: US-JNJFOC-20060300492

PATIENT
  Sex: Female

DRUGS (3)
  1. TYLENOL 8 HOUR EXTENDED RELEASE [Suspect]
     Indication: PAIN
     Route: 048
  2. TYLENOL 8 HOUR EXTENDED RELEASE [Suspect]
     Indication: NEUROPATHY
     Dosage: 1300-1950 MG 5-6HRS PRN
     Route: 048
  3. DIURETIC [Concomitant]

REACTIONS (3)
  - HEPATIC ENZYME INCREASED [None]
  - HYPERVENTILATION [None]
  - OVERDOSE [None]
